FAERS Safety Report 6747478-6 (Version None)
Quarter: 2010Q2

REPORT INFORMATION
  Report Type: 
  Country: None (occurrence: None)
  Receive Date: 20100528
  Receipt Date: 20100519
  Transmission Date: 20101027
  Serious: Yes (Hospitalization)
  Sender: FDA-Public Use
  Company Number: JP-MERCK-1004USA03681

PATIENT
  Age: 53 Year
  Sex: Female

DRUGS (7)
  1. ZETIA [Suspect]
     Indication: HYPERCHOLESTEROLAEMIA
     Route: 048
     Dates: start: 20091120, end: 20100410
  2. ZETIA [Suspect]
     Route: 048
     Dates: start: 20090401, end: 20090501
  3. ALLOPURINOL [Concomitant]
     Route: 065
  4. FUROSEMIDE [Concomitant]
     Route: 065
  5. OLMESARTAN MEDOXOMIL [Concomitant]
     Route: 065
  6. AMLODIPINE BESYLATE [Concomitant]
     Route: 065
  7. ETHYL ICOSAPENTATE [Concomitant]
     Route: 065

REACTIONS (2)
  - BLOOD CREATINE PHOSPHOKINASE INCREASED [None]
  - MYOGLOBINAEMIA [None]
